FAERS Safety Report 4941776-4 (Version None)
Quarter: 2006Q1

REPORT INFORMATION
  Report Type: 
  Country: None (occurrence: None)
  Receive Date: 20060307
  Receipt Date: 20060221
  Transmission Date: 20060701
  Serious: Yes (Other)
  Sender: FDA-Public Use
  Company Number: SUS1-2006-00072

PATIENT
  Age: 37 Year
  Sex: Female
  Weight: 72.5755 kg

DRUGS (13)
  1. EQUETRO [Suspect]
     Indication: BIPOLAR DISORDER
     Dosage: 200 MG 2DAY BID ORAL
     Route: 048
     Dates: start: 20051101, end: 20060129
  2. TARKA [Suspect]
     Dosage: 2/240 DAILY
     Dates: start: 20060114, end: 20060128
  3. MACROBID [Suspect]
     Dosage: 100 MG 2X DAILY
     Dates: start: 20060116, end: 20060210
  4. NORVASC [Concomitant]
  5. AMBIEN [Concomitant]
  6. CYMBALTA [Concomitant]
  7. LORAZEPAM [Concomitant]
  8. LOTREL [Concomitant]
  9. BENADRYL [Concomitant]
  10. EXCEDRIN (CAFFIENE, ACETYLSALICYLIC ACID) [Concomitant]
  11. AMBIEN [Concomitant]
  12. ZYPREXA [Concomitant]
  13. DEPAKOTE [Concomitant]

REACTIONS (16)
  - ABDOMINAL PAIN [None]
  - ANXIETY [None]
  - BACK PAIN [None]
  - BIPOLAR DISORDER [None]
  - BLOOD PRESSURE INCREASED [None]
  - CHEST PAIN [None]
  - DECREASED APPETITE [None]
  - DEPRESSION [None]
  - DRUG INTERACTION [None]
  - DYSPNOEA [None]
  - GROIN PAIN [None]
  - HEPATITIS [None]
  - INSOMNIA [None]
  - PAIN IN EXTREMITY [None]
  - PAIN IN JAW [None]
  - RENAL DISORDER [None]
